FAERS Safety Report 13617856 (Version 1)
Quarter: 2017Q2

REPORT INFORMATION
  Report Type: Spontaneous
  Country: US (occurrence: US)
  Receive Date: 20170606
  Receipt Date: 20170606
  Transmission Date: 20170830
  Serious: No
  Sender: FDA-Public Use
  Company Number: US-TARO-2016TAR00789

PATIENT
  Age: 7 Year
  Sex: Male

DRUGS (1)
  1. FEVERALL CHILDRENS [Suspect]
     Active Substance: ACETAMINOPHEN
     Indication: PYREXIA
     Dosage: UNK UNK, ONCE
     Route: 054
     Dates: start: 20160916, end: 20160916

REACTIONS (3)
  - Pyrexia [Not Recovered/Not Resolved]
  - Underdose [Unknown]
  - Drug ineffective [Not Recovered/Not Resolved]

NARRATIVE: CASE EVENT DATE: 20160916
